FAERS Safety Report 5360772-9 (Version None)
Quarter: 2007Q2

REPORT INFORMATION
  Report Type: 
  Country: None (occurrence: None)
  Receive Date: 20070618
  Receipt Date: 20070613
  Transmission Date: 20071010
  Serious: Yes (Death, Life-Threatening, Hospitalization)
  Sender: FDA-Public Use
  Company Number: BG-BAYER-200712526GDS

PATIENT
  Age: 76 Year
  Sex: Male
  Weight: 75 kg

DRUGS (6)
  1. SORAFENIB [Suspect]
     Indication: HEPATIC NEOPLASM MALIGNANT
     Dosage: TOTAL DAILY DOSE: 800 MG
     Route: 048
     Dates: start: 20070417, end: 20070425
  2. SORAFENIB [Suspect]
     Dosage: TOTAL DAILY DOSE: 800 MG
     Route: 048
     Dates: start: 20070508, end: 20070517
  3. SPIRONOLACTONE [Concomitant]
     Indication: MYOCARDIAL ISCHAEMIA
     Route: 048
     Dates: start: 20020101
  4. DIGOXIN [Concomitant]
     Indication: MYOCARDIAL ISCHAEMIA
     Route: 048
     Dates: start: 20000101
  5. FURANTRIL [Concomitant]
     Indication: MYOCARDIAL ISCHAEMIA
     Route: 048
     Dates: start: 20020101
  6. SINTROM [Concomitant]
     Indication: MYOCARDIAL ISCHAEMIA
     Route: 048
     Dates: start: 20000101

REACTIONS (3)
  - CEREBRAL ISCHAEMIA [None]
  - CEREBRAL THROMBOSIS [None]
  - HEPATIC NEOPLASM MALIGNANT [None]
